FAERS Safety Report 22373696 (Version 2)
Quarter: 2023Q2

REPORT INFORMATION
  Report Type: Spontaneous
  Country: HU (occurrence: HU)
  Receive Date: 20230526
  Receipt Date: 20230614
  Transmission Date: 20230721
  Serious: Yes (Other)
  Sender: FDA-Public Use
  Company Number: HU-Gedeon Richter Plc.-2023_GR_004705

PATIENT
  Age: 45 Year
  Sex: Female

DRUGS (11)
  1. LEVONORGESTREL [Suspect]
     Active Substance: LEVONORGESTREL
     Indication: Product used for unknown indication
     Dosage: 52 MG, SINGLE AT AN INITIAL RELEASE RATE OF 20 MICROGRAMS PER 24 HOUR
     Route: 015
     Dates: start: 20230201, end: 20230408
  2. NORETHINDRONE [Concomitant]
     Active Substance: NORETHINDRONE
     Indication: Menstrual cycle management
     Dosage: DOSE DESC: UNK
  3. RIVOTRIL [Concomitant]
     Active Substance: CLONAZEPAM
     Indication: Product used for unknown indication
     Dosage: 3X0.5MG
  4. SUPRAX [Concomitant]
     Active Substance: CEFIXIME
     Indication: Antibiotic prophylaxis
  5. BISOPROLOL [Concomitant]
     Active Substance: BISOPROLOL
     Indication: Product used for unknown indication
  6. PIROXICAM BETADEX [Concomitant]
     Active Substance: PIROXICAM BETADEX
     Indication: Uterine inflammation
  7. DULSEVIA 60 MG [Concomitant]
     Indication: Product used for unknown indication
  8. KLION [Concomitant]
     Indication: Uterine inflammation
  9. TAMLOSET [Concomitant]
     Indication: Product used for unknown indication
  10. LAMOLEP 50 MG [Concomitant]
     Indication: Product used for unknown indication
     Dosage: 2X50 MG
  11. BRINTELLIX 20 MG [Concomitant]
     Indication: Product used for unknown indication

REACTIONS (4)
  - Noninfective oophoritis [Recovering/Resolving]
  - Uterine inflammation [Recovering/Resolving]
  - Uterine spasm [Recovering/Resolving]
  - Vaginal haemorrhage [Recovering/Resolving]

NARRATIVE: CASE EVENT DATE: 20230201
